FAERS Safety Report 6937712-1 (Version None)
Quarter: 2010Q3

REPORT INFORMATION
  Report Type: 
  Country: None (occurrence: None)
  Receive Date: 20100820
  Receipt Date: 20100820
  Transmission Date: 20110219
  Serious: No
  Sender: FDA-Public Use
  Company Number: None

PATIENT
  Age: 49 Year
  Sex: Female
  Weight: 104.3273 kg

DRUGS (1)
  1. OSMOPREP [Suspect]
     Indication: PREOPERATIVE CARE
     Dates: start: 20100111, end: 20100111

REACTIONS (3)
  - ACUTE PHOSPHATE NEPHROPATHY [None]
  - FATIGUE [None]
  - RENAL FAILURE [None]
